FAERS Safety Report 25278031 (Version 1)
Quarter: 2025Q2

REPORT INFORMATION
  Report Type: Spontaneous
  Country: US (occurrence: US)
  Receive Date: 20250507
  Receipt Date: 20250507
  Transmission Date: 20250716
  Serious: No
  Sender: BIOGEN
  Company Number: US-BIOGENIDEC-2014BI127043

PATIENT
  Age: 25 Year
  Sex: Female

DRUGS (2)
  1. TECFIDERA [Suspect]
     Active Substance: DIMETHYL FUMARATE
     Indication: Multiple sclerosis
     Route: 050
     Dates: start: 20131018, end: 20131024
  2. TECFIDERA [Suspect]
     Active Substance: DIMETHYL FUMARATE
     Route: 050
     Dates: start: 20131025, end: 20141120

REACTIONS (10)
  - Multiple sclerosis [Unknown]
  - Dehydration [Unknown]
  - Vomiting [Unknown]
  - Urticaria [Unknown]
  - Eye swelling [Recovered/Resolved]
  - Pyrexia [Recovered/Resolved]
  - Erythema [Recovered/Resolved]
  - Pruritus [Recovered/Resolved]
  - Diarrhoea [Recovered/Resolved]
  - Hypersensitivity [Recovered/Resolved]

NARRATIVE: CASE EVENT DATE: 20131018
